FAERS Safety Report 19512027 (Version 1)
Quarter: 2021Q3

REPORT INFORMATION
  Report Type: Spontaneous
  Country: FR (occurrence: FR)
  Receive Date: 20210709
  Receipt Date: 20210709
  Transmission Date: 20211014
  Serious: Yes (Other)
  Sender: FDA-Public Use
  Company Number: FR-MYLANLABS-2021M1039066

PATIENT
  Age: 60 Year
  Sex: Male

DRUGS (7)
  1. CABERGOLINE. [Suspect]
     Active Substance: CABERGOLINE
     Dosage: 0.5 MILLIGRAM X 3/WEEK
     Route: 065
  2. CABERGOLINE. [Suspect]
     Active Substance: CABERGOLINE
     Dosage: 0.5 MILLIGRAM, QD
     Route: 065
     Dates: start: 201301
  3. CABERGOLINE. [Suspect]
     Active Substance: CABERGOLINE
     Indication: PROLACTIN-PRODUCING PITUITARY TUMOUR
     Dosage: 1 MILLIGRAM, DAILY
     Route: 065
  4. CABERGOLINE. [Suspect]
     Active Substance: CABERGOLINE
     Dosage: 10.5 MILLIGRAM, QW
     Route: 065
     Dates: start: 201907
  5. TEMOZOLOMIDE. [Suspect]
     Active Substance: TEMOZOLOMIDE
     Indication: PROLACTIN-PRODUCING PITUITARY TUMOUR
     Dosage: 220?290 MG, DAILY, FOR 5 OUT OF 28 DAYS
     Route: 065
     Dates: start: 201907
  6. PASIREOTIDE. [Concomitant]
     Active Substance: PASIREOTIDE
     Indication: PRODUCT USED FOR UNKNOWN INDICATION
     Dosage: 0.6?0.9 MG BID
     Route: 065
  7. CABERGOLINE. [Suspect]
     Active Substance: CABERGOLINE
     Dosage: 1 MILLIGRAM, QD
     Route: 065
     Dates: start: 201306

REACTIONS (3)
  - Neoplasm progression [Unknown]
  - Drug ineffective [Unknown]
  - Disease recurrence [Unknown]

NARRATIVE: CASE EVENT DATE: 201512
